FAERS Safety Report 6062169-5 (Version None)
Quarter: 2009Q1

REPORT INFORMATION
  Report Type: 
  Country: None (occurrence: None)
  Receive Date: 20090202
  Receipt Date: 20090202
  Transmission Date: 20090719
  Serious: Yes (Other)
  Sender: FDA-Public Use
  Company Number: None

PATIENT
  Sex: Male
  Weight: 96.6162 kg

DRUGS (1)
  1. METOPROLOL SUCCINATE EXTENDED RELEASE [Suspect]
     Indication: HYPERTENSION
     Dosage: 50MG QD PO TRIED X 2
     Route: 048

REACTIONS (3)
  - CHEST PAIN [None]
  - PALPITATIONS [None]
  - PRODUCT QUALITY ISSUE [None]
